FAERS Safety Report 20200370 (Version 1)
Quarter: 2021Q4

REPORT INFORMATION
  Report Type: Spontaneous
  Country: US (occurrence: None)
  Receive Date: 20211216
  Receipt Date: 20211216
  Transmission Date: 20220303
  Serious: No
  Sender: FDA-Public Use
  Company Number: None

PATIENT

DRUGS (2)
  1. HYDRALAZINE HCL [Suspect]
     Active Substance: HYDRALAZINE HYDROCHLORIDE
     Route: 048
  2. HYDRALAZINE HCL [Suspect]
     Active Substance: HYDRALAZINE HYDROCHLORIDE
     Route: 048

REACTIONS (9)
  - Transcription medication error [None]
  - Product dispensing error [None]
  - Intercepted product dispensing error [None]
  - Product appearance confusion [None]
  - Product size issue [None]
  - Product shape issue [None]
  - Product colour issue [None]
  - Product dosage form issue [None]
  - Device computer issue [None]
